FAERS Safety Report 23795103 (Version 1)
Quarter: 2024Q2

REPORT INFORMATION
  Report Type: Spontaneous
  Country: US (occurrence: None)
  Receive Date: 20240426
  Receipt Date: 20240426
  Transmission Date: 20240716
  Serious: Yes (Hospitalization)
  Sender: FDA-Public Use
  Company Number: None

PATIENT
  Age: 18 Year
  Sex: Female
  Weight: 72 kg

DRUGS (12)
  1. BREO ELLIPTA [Suspect]
     Active Substance: FLUTICASONE FUROATE\VILANTEROL TRIFENATATE
     Indication: Asthma
     Dosage: OTHER STRENGTH : MCG;?OTHER QUANTITY : 1 INHALATION(S);?
     Route: 055
     Dates: start: 20240225, end: 20240411
  2. TRELEGY ELLIPTA [Suspect]
     Active Substance: FLUTICASONE FUROATE\UMECLIDINIUM BROMIDE\VILANTEROL TRIFENATATE
     Indication: Asthma
     Dosage: OTHER STRENGTH : MCG;?OTHER QUANTITY : 1 INHALATION(S);?FREQUENCY : EVERY DAY BEFORE NOON;?
     Route: 055
     Dates: start: 20240412, end: 20240423
  3. SYMBICORT [Concomitant]
     Active Substance: BUDESONIDE\FORMOTEROL FUMARATE DIHYDRATE
  4. SINGULAIR [Concomitant]
     Active Substance: MONTELUKAST SODIUM
  5. LAMICTAL [Concomitant]
     Active Substance: LAMOTRIGINE
  6. PROZAC [Concomitant]
     Active Substance: FLUOXETINE HYDROCHLORIDE
  7. YASMIN [Concomitant]
     Active Substance: DROSPIRENONE\ETHINYL ESTRADIOL
  8. VITAMINS [Concomitant]
     Active Substance: VITAMINS
  9. VITAMIN D3 [Concomitant]
     Active Substance: CHOLECALCIFEROL
  10. IRON [Concomitant]
     Active Substance: IRON
  11. MAGNESIUM [Concomitant]
     Active Substance: MAGNESIUM
  12. PROBIOTICS NOS [Concomitant]
     Active Substance: PROBIOTICS NOS

REACTIONS (5)
  - Product substitution issue [None]
  - Dyspnoea [None]
  - Cough [None]
  - Oxygen saturation decreased [None]
  - Eosinophil count increased [None]

NARRATIVE: CASE EVENT DATE: 20240421
